FAERS Safety Report 25412785 (Version 1)
Quarter: 2025Q2

REPORT INFORMATION
  Report Type: Spontaneous
  Country: JP (occurrence: JP)
  Receive Date: 20250609
  Receipt Date: 20250609
  Transmission Date: 20250716
  Serious: Yes (Death)
  Sender: AMGEN
  Company Number: JP-DSJP-DS-2025-145513-

PATIENT

DRUGS (1)
  1. DENOSUMAB [Suspect]
     Active Substance: DENOSUMAB
     Indication: Product used for unknown indication
     Dosage: 120 MG, ONCE EVERY 4 WK
     Route: 058

REACTIONS (1)
  - Condition aggravated [Fatal]
